FAERS Safety Report 8393875-5 (Version None)
Quarter: 2012Q2

REPORT INFORMATION
  Report Type: 
  Country: None (occurrence: None)
  Receive Date: 20120530
  Receipt Date: 20120518
  Transmission Date: 20120825
  Serious: Yes (Hospitalization)
  Sender: FDA-Public Use
  Company Number: US-BRISTOL-MYERS SQUIBB COMPANY-16547804

PATIENT
  Age: 57 Year
  Sex: Male
  Weight: 62 kg

DRUGS (28)
  1. ZOLPIDEM [Concomitant]
     Indication: PROPHYLAXIS
     Dates: start: 20111106
  2. POTASSIUM CHLORIDE [Concomitant]
     Indication: PROPHYLAXIS
     Dates: start: 20120213
  3. FENTANYL-100 [Concomitant]
     Indication: PAIN
     Dates: start: 20120323
  4. NEXIUM [Concomitant]
     Dates: start: 20120318
  5. MIRALAX [Concomitant]
     Indication: CONSTIPATION
     Dates: start: 20111122
  6. TYLENOL [Concomitant]
     Dates: start: 20110311
  7. IMODIUM [Concomitant]
     Indication: DIARRHOEA
     Dates: start: 20120206
  8. CARBOPLATIN [Suspect]
     Indication: HEAD AND NECK CANCER
     Dosage: 1 DF= 5AUC. LAST DOSE PRIOR TO EVENT: 2APR12 4TH INF
     Dates: start: 20120130
  9. VITAMIN C [Concomitant]
     Indication: PROPHYLAXIS
     Dates: start: 20110911
  10. CLOTRIMAZOLE [Concomitant]
     Dates: start: 20111028
  11. FLUCONAZOLE [Concomitant]
     Indication: ANTIFUNGAL PROPHYLAXIS
     Dates: start: 20120202
  12. BENADRYL [Concomitant]
     Indication: DERMATITIS ACNEIFORM
     Dates: start: 20120221
  13. COLACE [Concomitant]
     Dates: start: 20110711
  14. MORPHINE [Concomitant]
     Indication: PAIN
     Dates: start: 20120321
  15. SENNOSIDE A+B [Concomitant]
     Indication: CONSTIPATION
     Dates: start: 20110711
  16. CLOTRIMAZOLE [Concomitant]
     Indication: ANTIFUNGAL PROPHYLAXIS
     Dates: start: 20111028
  17. LEVOFLOXACIN [Concomitant]
     Indication: INFECTION
     Dates: start: 20120323
  18. MIRTAZAPINE [Concomitant]
     Indication: PROPHYLAXIS
     Dates: start: 20120220
  19. ERBITUX [Suspect]
     Indication: HEAD AND NECK CANCER
     Dosage: LAST DOSE PRIOR TO EVENT: 9APR12 11TH INF. SCEDULED 16APR12 HELD AND PLANNED ON 17APR12
     Route: 042
     Dates: start: 20120130
  20. OXYCODONE HCL [Concomitant]
     Indication: PAIN PROPHYLAXIS
     Dates: start: 20111116
  21. NOVOLIN R [Concomitant]
     Indication: PROPHYLAXIS
     Dates: start: 20110711
  22. NEXIUM [Concomitant]
     Indication: GASTROOESOPHAGEAL REFLUX DISEASE
     Dates: start: 20120318
  23. FLUOROURACIL [Suspect]
     Indication: HEAD AND NECK CANCER
     Dosage: LAST DOSE PRIOR TO EVENT: 2APR12 4TH INF
     Route: 065
     Dates: start: 20120130
  24. CLINDAMYCIN [Concomitant]
     Indication: DERMATITIS ACNEIFORM
     Dates: start: 20120213
  25. MAGNESIUM HYDROXIDE TAB [Concomitant]
     Indication: GASTROOESOPHAGEAL REFLUX DISEASE
     Dates: start: 20120409
  26. PERCOCET [Concomitant]
     Indication: PAIN
     Dates: start: 20120211
  27. ACETAMINOPHEN [Concomitant]
     Indication: PAIN
  28. ACETAMINOPHEN [Concomitant]
     Indication: HEADACHE

REACTIONS (1)
  - PLEURAL EFFUSION [None]
